FAERS Safety Report 23443349 (Version 2)
Quarter: 2024Q1

REPORT INFORMATION
  Report Type: Other
  Country: JP (occurrence: JP)
  Receive Date: 20240125
  Receipt Date: 20240213
  Transmission Date: 20240410
  Serious: Yes (Other)
  Sender: FDA-Public Use
  Company Number: JP-UROVANT SCIENCES GMBH-202401-URV-000048

PATIENT
  Age: 80 Year
  Sex: Female

DRUGS (9)
  1. VIBEGRON [Suspect]
     Active Substance: VIBEGRON
     Indication: Hypertonic bladder
     Dosage: 50 MG, QD
     Route: 048
     Dates: start: 202003
  2. VIBEGRON [Suspect]
     Active Substance: VIBEGRON
     Dosage: 50 MG, TID
     Route: 048
     Dates: start: 20240104, end: 20240104
  3. IMIDAFENACIN [Suspect]
     Active Substance: IMIDAFENACIN
     Indication: Product used for unknown indication
     Dosage: 0.4 MG, QD
     Route: 048
     Dates: start: 202108
  4. IMIDAFENACIN [Suspect]
     Active Substance: IMIDAFENACIN
     Dosage: 10 TAB, QD (TOTAL DOSE: 1.0 MG)
     Route: 048
     Dates: start: 20240104, end: 20240104
  5. EBRANTIL                           /00631801/ [Concomitant]
     Indication: Product used for unknown indication
     Dosage: 120 MG, QD
     Route: 048
  6. ANAFRANIL [Concomitant]
     Active Substance: CLOMIPRAMINE HYDROCHLORIDE
     Indication: Product used for unknown indication
     Dosage: 100 MG, QD
     Route: 048
  7. TOPIROXOSTAT [Concomitant]
     Active Substance: TOPIROXOSTAT
     Indication: Product used for unknown indication
     Dosage: 20 MG, QD
     Route: 048
  8. DONEPEZIL HYDROCHLORIDE [Concomitant]
     Active Substance: DONEPEZIL HYDROCHLORIDE
     Indication: Product used for unknown indication
     Dosage: 5 MG, QD
     Route: 048
  9. CALCIUM CARBONATE\CHOLECALCIFEROL\MAGNESIUM CARBONATE [Concomitant]
     Active Substance: CALCIUM CARBONATE\CHOLECALCIFEROL\MAGNESIUM CARBONATE
     Indication: Product used for unknown indication
     Dosage: 2 DOSAGE FORM, QD
     Route: 048

REACTIONS (2)
  - Dementia [Recovered/Resolved]
  - Accidental overdose [Unknown]

NARRATIVE: CASE EVENT DATE: 20240104
